FAERS Safety Report 22195647 (Version 1)
Quarter: 2023Q2

REPORT INFORMATION
  Report Type: Other
  Country: US (occurrence: US)
  Receive Date: 20230411
  Receipt Date: 20230411
  Transmission Date: 20230721
  Serious: Yes (Death)
  Sender: FDA-Public Use
  Company Number: US-ALVOGEN-2023089944

PATIENT
  Age: 41 Year
  Sex: Male

DRUGS (3)
  1. GABAPENTIN [Suspect]
     Active Substance: GABAPENTIN
     Indication: Drug abuse
  2. SERTRALINE [Suspect]
     Active Substance: SERTRALINE HYDROCHLORIDE
     Indication: Drug abuse
  3. FENTANYL [Suspect]
     Active Substance: FENTANYL
     Indication: Drug abuse

REACTIONS (2)
  - Drug abuse [Fatal]
  - Prescription drug used without a prescription [Unknown]
